FAERS Safety Report 24590536 (Version 3)
Quarter: 2024Q4

REPORT INFORMATION
  Report Type: Report from Study
  Country: CA (occurrence: CA)
  Receive Date: 20241107
  Receipt Date: 20241112
  Transmission Date: 20250115
  Serious: Yes (Hospitalization, Other)
  Sender: CELLTRION
  Company Number: CA-CELLTRION INC.-2024CA018355

PATIENT

DRUGS (14)
  1. RITUXIMAB-ABBS [Suspect]
     Active Substance: RITUXIMAB-ABBS
     Indication: Thrombotic thrombocytopenic purpura
     Dosage: 1000 MG, QWX4WEEKS (NOT STARTED )
     Route: 042
  2. RITUXIMAB-ABBS [Suspect]
     Active Substance: RITUXIMAB-ABBS
     Dosage: 1000 MG, INF#1
     Route: 042
     Dates: start: 20240905
  3. RITUXIMAB-ABBS [Suspect]
     Active Substance: RITUXIMAB-ABBS
     Dosage: 1000 MG, INF#2
     Route: 042
     Dates: start: 20240905
  4. RITUXIMAB-ABBS [Suspect]
     Active Substance: RITUXIMAB-ABBS
     Dosage: 1000 MG, QW FOR 4WKS
     Route: 042
     Dates: start: 20240905, end: 20240918
  5. ACETAMINOPHEN [Concomitant]
     Active Substance: ACETAMINOPHEN
     Indication: Premedication
     Dosage: 650 MG
     Route: 048
  6. AMLODIPINE [Concomitant]
     Active Substance: AMLODIPINE BESYLATE
  7. BENADRYL [DIPHENHYDRAMINE] [Concomitant]
     Indication: Premedication
  8. DIPHENHYDRAMINE HYDROCHLORIDE [Concomitant]
     Active Substance: DIPHENHYDRAMINE HYDROCHLORIDE
     Indication: Premedication
     Dosage: 50 MILLIGRAM
     Route: 048
  9. HYDROCHLOROTHIAZIDE [Concomitant]
     Active Substance: HYDROCHLOROTHIAZIDE
  10. METHYLPREDNISOLONE [Concomitant]
     Active Substance: METHYLPREDNISOLONE
     Indication: Premedication
     Dosage: 100 MG
     Route: 042
  11. PANTOPRAZOLE SODIUM [Concomitant]
     Active Substance: PANTOPRAZOLE SODIUM
  12. PREDNISONE [Concomitant]
     Active Substance: PREDNISONE
  13. VALSARTAN [Concomitant]
     Active Substance: VALSARTAN
  14. SULFATRIM [Concomitant]
     Active Substance: SULFAMETHOXAZOLE\TRIMETHOPRIM

REACTIONS (9)
  - Oxygen saturation abnormal [Recovering/Resolving]
  - Transient ischaemic attack [Unknown]
  - Hyperglycaemia [Not Recovered/Not Resolved]
  - Migraine [Unknown]
  - Herpes zoster [Unknown]
  - Dry throat [Recovered/Resolved]
  - Throat irritation [Recovered/Resolved]
  - Intentional dose omission [Unknown]
  - Off label use [Unknown]

NARRATIVE: CASE EVENT DATE: 20240901
